FAERS Safety Report 7129321-9 (Version None)
Quarter: 2010Q4

REPORT INFORMATION
  Report Type: 
  Country: None (occurrence: None)
  Receive Date: 20101130
  Receipt Date: 20101110
  Transmission Date: 20110411
  Serious: No
  Sender: FDA-Public Use
  Company Number: US-PFIZER INC-2010148354

PATIENT

DRUGS (1)
  1. SINEQUAN [Suspect]

REACTIONS (1)
  - WEIGHT INCREASED [None]
